FAERS Safety Report 8840876 (Version 1)
Quarter: 2012Q4

REPORT INFORMATION
  Report Type: 
  Country: US (occurrence: US)
  Receive Date: 20121015
  Receipt Date: 20121015
  Transmission Date: 20130627
  Serious: Yes (Other)
  Sender: FDA-Public Use
  Company Number: US-OTSUKA-US-2012-11483

PATIENT
  Age: 62 Year

DRUGS (1)
  1. SAMSCA [Suspect]
     Indication: INAPPROPRIATE ANTIDIURETIC HORMONE SECRETION
     Dosage: 15 Mg milligram(s), daily dose
     Route: 048

REACTIONS (5)
  - Rapid correction of hyponatraemia [Unknown]
  - Mental status changes [Unknown]
  - Dystonia [Unknown]
  - Hydrocephalus [Unknown]
  - Brain oedema [Unknown]
